FAERS Safety Report 23463052 (Version 2)
Quarter: 2024Q1

REPORT INFORMATION
  Report Type: Spontaneous
  Country: US (occurrence: US)
  Receive Date: 20240131
  Receipt Date: 20240207
  Transmission Date: 20240410
  Serious: No
  Sender: FDA-Public Use
  Company Number: US-ABBVIE-5616180

PATIENT
  Age: 35 Year
  Sex: Male
  Weight: 84 kg

DRUGS (1)
  1. RECTIV [Suspect]
     Active Substance: NITROGLYCERIN
     Indication: Product used for unknown indication
     Dosage: FORM STRENGTH WAS 0.4 MILLIGRAM
     Route: 065
     Dates: start: 202311

REACTIONS (2)
  - Cardiac discomfort [Not Recovered/Not Resolved]
  - Tremor [Not Recovered/Not Resolved]

NARRATIVE: CASE EVENT DATE: 20240121
